FAERS Safety Report 24030398 (Version 1)
Quarter: 2024Q2

REPORT INFORMATION
  Report Type: Report from Study
  Country: ZA (occurrence: ZA)
  Receive Date: 20240628
  Receipt Date: 20240628
  Transmission Date: 20240716
  Serious: Yes (Death, Other)
  Sender: FDA-Public Use
  Company Number: ZA-JNJFOC-20240673044

PATIENT

DRUGS (6)
  1. BEDAQUILINE [Suspect]
     Active Substance: BEDAQUILINE
     Indication: Pulmonary tuberculosis
     Dosage: FOR 2 WEEKS
     Route: 048
  2. BEDAQUILINE [Suspect]
     Active Substance: BEDAQUILINE
     Dosage: THREE TIMES A WEEK FOR 24 WEEKS
     Route: 048
  3. PRETOMANID [Suspect]
     Active Substance: PRETOMANID
     Indication: Pulmonary tuberculosis
     Dosage: FOR 26 WEEKS
     Route: 048
  4. LINEZOLID [Suspect]
     Active Substance: LINEZOLID
     Indication: Pulmonary tuberculosis
     Dosage: DAILY FOR UP TO 26 WEEKS
     Route: 048
  5. LINEZOLID [Suspect]
     Active Substance: LINEZOLID
     Route: 048
  6. LINEZOLID [Suspect]
     Active Substance: LINEZOLID
     Route: 048

REACTIONS (7)
  - Death [Fatal]
  - Electrocardiogram QT prolonged [Unknown]
  - Neuropathy peripheral [Not Recovered/Not Resolved]
  - Optic neuritis [Recovered/Resolved]
  - Myelosuppression [Unknown]
  - Alanine aminotransferase increased [Unknown]
  - Aspartate aminotransferase increased [Unknown]
